FAERS Safety Report 22348514 (Version 2)
Quarter: 2023Q4

REPORT INFORMATION
  Report Type: Spontaneous
  Country: CA (occurrence: CA)
  Receive Date: 20230522
  Receipt Date: 20231107
  Transmission Date: 20240110
  Serious: Yes (Hospitalization, Other)
  Sender: FDA-Public Use
  Company Number: CA-BAXTER-2023BAX021967

PATIENT
  Age: 28 Year
  Sex: Female

DRUGS (17)
  1. SODIUM CHLORIDE [Suspect]
     Active Substance: SODIUM CHLORIDE
     Indication: Nausea
     Dosage: 1 LITERS, (DOSAGE FORM: NOT SPECIFIED) AT AN UNSPECIFIED FREQUENCY
     Route: 065
  2. SODIUM CHLORIDE [Suspect]
     Active Substance: SODIUM CHLORIDE
     Indication: Vomiting
  3. SODIUM CHLORIDE [Suspect]
     Active Substance: SODIUM CHLORIDE
     Indication: Milk-alkali syndrome
  4. CALCITONIN [Suspect]
     Active Substance: CALCITONIN
     Indication: Hypercalcaemia
     Dosage: (DOSAGE FORM: NOT SPECIFIED) AT AN UNSPECIFIED DOSE AND FREQUENCY
     Route: 058
  5. CALCITONIN [Suspect]
     Active Substance: CALCITONIN
     Indication: Milk-alkali syndrome
  6. CALCIUM CARBONATE [Suspect]
     Active Substance: CALCIUM CARBONATE
     Indication: Nausea
     Dosage: 750 MILLIGRAM, 6 EVERY 1 DAYS (DOSAGE FORM: NOT SPECIFIED)
     Route: 048
  7. CALCIUM CARBONATE [Suspect]
     Active Substance: CALCIUM CARBONATE
     Indication: Gastrooesophageal reflux disease
     Dosage: UNK
     Route: 065
  8. DOXYLAMINE SUCCINATE\PYRIDOXINE HYDROCHLORIDE [Suspect]
     Active Substance: DOXYLAMINE SUCCINATE\PYRIDOXINE HYDROCHLORIDE
     Indication: Product used for unknown indication
     Dosage: 6 DOSAGE FORMS, 1 EVERY 1 DAY
     Route: 048
  9. FOLIC ACID [Suspect]
     Active Substance: FOLIC ACID
     Indication: Product used for unknown indication
     Dosage: 1 MILLIGRAM, 1 EVERY 1 DAYS (DOSAGE FORM: NOT SPECIFIED)
     Route: 048
  10. METOCLOPRAMIDE [Suspect]
     Active Substance: METOCLOPRAMIDE
     Indication: Vomiting
     Dosage: 10 MILLIGRAM, 2 EVERY 1 DAYS
     Route: 048
  11. METOCLOPRAMIDE [Suspect]
     Active Substance: METOCLOPRAMIDE
     Indication: Nausea
     Dosage: UNK
     Route: 065
  12. METOCLOPRAMIDE [Suspect]
     Active Substance: METOCLOPRAMIDE
     Indication: Morning sickness
  13. PANTOPRAZOLE [Suspect]
     Active Substance: PANTOPRAZOLE
     Indication: Product used for unknown indication
     Dosage: AT AN UNSPECIFIED DOSE AND FREQUENCY (DOSAGE FORM: NOT SPECIFIED)
     Route: 065
  14. METOCLOPRAMIDE HYDROCHLORIDE [Suspect]
     Active Substance: METOCLOPRAMIDE HYDROCHLORIDE
     Indication: Milk-alkali syndrome
     Dosage: 10 MILLIGRAM, 1 EVERY 12 HOURS
     Route: 048
  15. DOXYLAMINE [Suspect]
     Active Substance: DOXYLAMINE
     Indication: Product used for unknown indication
     Dosage: 10 MILLIGRAM AT AN UNSPECIIFED FREQUENCY
     Route: 048
  16. PYRIDOXINE [Suspect]
     Active Substance: PYRIDOXINE
     Indication: Product used for unknown indication
     Dosage: 10 MILLIGRAM AT AN UNSPECIFIED FREQUERY
     Route: 048
  17. PANTOPRAZOLE [Suspect]
     Active Substance: PANTOPRAZOLE
     Indication: Product used for unknown indication
     Dosage: TARO- PANTOPRAZOLE (DOSAGE FORM: TABLET (DELAYED RELEASE)
     Route: 048

REACTIONS (19)
  - Blood bicarbonate increased [Recovered/Resolved]
  - Blood parathyroid hormone decreased [Recovered/Resolved]
  - Dialysis [Recovered/Resolved]
  - Hypercalcaemia [Recovered/Resolved]
  - Hyperphosphataemia [Recovered/Resolved]
  - Hypochloraemia [Recovered/Resolved]
  - Live birth [Recovered/Resolved]
  - Malaise [Recovered/Resolved]
  - Metabolic alkalosis [Recovered/Resolved]
  - Milk-alkali syndrome [Recovered/Resolved]
  - Muscle spasms [Recovered/Resolved]
  - Nausea [Recovered/Resolved]
  - Renal impairment [Recovered/Resolved]
  - Renal injury [Recovered/Resolved]
  - Vomiting [Recovered/Resolved]
  - Normal newborn [Recovered/Resolved]
  - Drug ineffective [Unknown]
  - Morning sickness [Recovered/Resolved]
  - Maternal exposure during pregnancy [Recovered/Resolved]
